FAERS Safety Report 15517437 (Version 1)
Quarter: 2018Q4

REPORT INFORMATION
  Report Type: Spontaneous
  Country: IL (occurrence: IL)
  Receive Date: 20181017
  Receipt Date: 20181017
  Transmission Date: 20190205
  Serious: Yes (Life-Threatening, Other)
  Sender: FDA-Public Use
  Company Number: IL-JNJFOC-20181021669

PATIENT
  Age: 80 Year
  Sex: Male

DRUGS (3)
  1. CARDILOC [Concomitant]
     Active Substance: BISOPROLOL FUMARATE
     Route: 065
  2. OSMO-ADALAT [Suspect]
     Active Substance: NIFEDIPINE
     Indication: PRODUCT USED FOR UNKNOWN INDICATION
     Route: 048
  3. XARELTO [Suspect]
     Active Substance: RIVAROXABAN
     Indication: PRODUCT USED FOR UNKNOWN INDICATION
     Route: 048

REACTIONS (2)
  - Pruritus [Unknown]
  - Rash [Unknown]
